FAERS Safety Report 8789339 (Version 3)
Quarter: 2012Q4

REPORT INFORMATION
  Report Type: Spontaneous
  Country: None (occurrence: None)
  Receive Date: 20120905
  Receipt Date: 20121012
  Transmission Date: 20130627
  Serious: Yes (Hospitalization)
  Sender: FDA-Public Use
  Company Number: AUR-APL-2012-03654

PATIENT
  Age: 39 Year
  Sex: Male

DRUGS (12)
  1. FLUOXETINE [Suspect]
     Indication: DEPRESSION
     Route: 048
  2. DICLOFENAC [Suspect]
     Indication: MUSCULOSKELETAL PAIN
     Route: 048
     Dates: start: 20120703, end: 20120726
  3. FERROUS SULPHATE (FERROUS SULFATE) [Concomitant]
  4. LANSOPRAZOLE (LANSOPRAZOLE) [Concomitant]
  5. METHADONE (METHADONE) [Concomitant]
  6. MULTIVITAMIN (VIGRAN) [Concomitant]
  7. PARACETAMOL (PARACETAMOL) [Concomitant]
  8. PREGABALIN (PREGABALIN) [Concomitant]
  9. SERETIDE (SERETIDE /01420901/) [Concomitant]
  10. THIAMINE (THIAMINE) [Concomitant]
  11. TRAMADOL (TRAMADOL) [Concomitant]
  12. SALBUTAMOL (SALBUTAMOL) [Concomitant]

REACTIONS (3)
  - Bleeding varicose vein [None]
  - Gastrointestinal haemorrhage [None]
  - Melaena [None]
